FAERS Safety Report 9029121 (Version 1)
Quarter: 2013Q1

REPORT INFORMATION
  Report Type: Spontaneous
  Country: US (occurrence: US)
  Receive Date: 20130122
  Receipt Date: 20130122
  Transmission Date: 20140127
  Serious: Yes (Other)
  Sender: FDA-Public Use
  Company Number: US-ROCHE-1180071

PATIENT
  Age: 101 Year
  Sex: Female

DRUGS (1)
  1. ERIVEDGE [Suspect]
     Indication: BASAL CELL CARCINOMA
     Route: 048
     Dates: start: 201203

REACTIONS (4)
  - Squamous cell carcinoma [Recovering/Resolving]
  - Muscle spasms [Recovering/Resolving]
  - Decreased appetite [Recovering/Resolving]
  - Alopecia [Recovering/Resolving]
